FAERS Safety Report 8756612 (Version 2)
Quarter: 2012Q4

REPORT INFORMATION
  Report Type: 
  Country: DE (occurrence: DE)
  Receive Date: 20120828
  Receipt Date: 20120906
  Transmission Date: 20130627
  Serious: Yes (Hospitalization, Other)
  Sender: FDA-Public Use
  Company Number: DE-JNJFOC-20120812317

PATIENT
  Age: 46 Year
  Sex: Male

DRUGS (2)
  1. IBUPROFEN [Suspect]
     Indication: MIGRAINE
     Route: 065
  2. PELARGONIUM SIDOIDES [Concomitant]
     Indication: VIRAL INFECTION
     Route: 065
     Dates: start: 200512

REACTIONS (4)
  - Drug-induced liver injury [Unknown]
  - Viral infection [None]
  - Back pain [None]
  - Musculoskeletal pain [None]
